FAERS Safety Report 9019112 (Version 1)
Quarter: 2013Q1

REPORT INFORMATION
  Report Type: Spontaneous
  Country: PH (occurrence: PH)
  Receive Date: 20130118
  Receipt Date: 20130118
  Transmission Date: 20140127
  Serious: Yes (Death)
  Sender: FDA-Public Use
  Company Number: PH-BAXTER-2013BAX002139

PATIENT
  Age: 50 None
  Sex: Female

DRUGS (1)
  1. DIANEAL PD2 WITH 1.5% DEXTROSE [Suspect]
     Indication: RENAL FAILURE ACUTE
     Route: 033
     Dates: start: 20130109

REACTIONS (1)
  - Cardiac arrest [Fatal]
